FAERS Safety Report 9257598 (Version 1)
Quarter: 2013Q1

REPORT INFORMATION
  Report Type: Spontaneous
  Country: US (occurrence: None)
  Receive Date: 20121212
  Receipt Date: 20121212
  Transmission Date: 20140127
  Serious: No
  Sender: FDA-Public Use
  Company Number: 1209USA008821

PATIENT
  Age: 52 Year
  Sex: Female
  Weight: 99.8 kg

DRUGS (10)
  1. VICTRELIS [Suspect]
     Dosage: 800 MG, TID, (FOUR 200 MG CAPSULES), ORAL
     Route: 048
  2. PEGASYS [Suspect]
  3. RIBAPAK [Suspect]
     Dosage: 1200
  4. NEUPOGEN (FILGRASTIM) [Concomitant]
  5. WELLBUTRIN (BUPROPION HYDROCHLORIDE) TABLET [Concomitant]
  6. ZANTAC (RANITIDINE HYDROCHLORIDE) TABLET [Concomitant]
  7. METFORMIN (METFORMIN) TABLET [Concomitant]
  8. VITAMIN D (UNSPECIFIED) (VITAMIN D (UNSPECIFIED)) CAPSULE [Concomitant]
  9. VITAMINS (UNSPECIFIED) (VITAMINS (UNSPECIFIED)) CAPSULE [Concomitant]
  10. ZOFRAN (ONDANSETRON HYDROCHLORIDE) TABLET [Concomitant]

REACTIONS (4)
  - Cardiac murmur [None]
  - Dyspnoea [None]
  - Asthenia [None]
  - Haemoglobin decreased [None]
